FAERS Safety Report 11759978 (Version 1)
Quarter: 2015Q4

REPORT INFORMATION
  Report Type: Spontaneous
  Country: US (occurrence: US)
  Receive Date: 20151120
  Receipt Date: 20151120
  Transmission Date: 20160304
  Serious: No
  Sender: FDA-Public Use
  Company Number: US-ELI_LILLY_AND_COMPANY-US201210003427

PATIENT
  Sex: Female

DRUGS (2)
  1. FORTEO [Suspect]
     Active Substance: TERIPARATIDE
     Dosage: 20 UG, QD
  2. FORTEO [Suspect]
     Active Substance: TERIPARATIDE
     Indication: OSTEOPOROSIS
     Dosage: 20 UG, QD
     Dates: start: 20121004

REACTIONS (8)
  - Eructation [Unknown]
  - Dizziness [Unknown]
  - Regurgitation [Unknown]
  - Vomiting [Unknown]
  - Discomfort [Unknown]
  - Dyspepsia [Unknown]
  - Peripheral swelling [Unknown]
  - Oesophageal discomfort [Unknown]
